FAERS Safety Report 22193484 (Version 1)
Quarter: 2023Q2

REPORT INFORMATION
  Report Type: Other
  Country: None (occurrence: GB)
  Receive Date: 20230410
  Receipt Date: 20230410
  Transmission Date: 20230722
  Serious: Yes (Other)
  Sender: FDA-Public Use
  Company Number: GB-Breckenridge Pharmaceutical, Inc.-2140122

PATIENT
  Age: 14 Year
  Sex: Male

DRUGS (5)
  1. OMEPRAZOLE [Suspect]
     Active Substance: OMEPRAZOLE
     Indication: Gastrointestinal disorder prophylaxis
  2. BENZOYL PEROXIDE [Concomitant]
     Active Substance: BENZOYL PEROXIDE
  3. GABAPENTIN [Concomitant]
     Active Substance: GABAPENTIN
  4. METHYLPREDNISOLONE [Suspect]
     Active Substance: METHYLPREDNISOLONE
  5. NIZORAL [Concomitant]
     Active Substance: KETOCONAZOLE

REACTIONS (1)
  - Dystonia [Recovered/Resolved]
